FAERS Safety Report 25277634 (Version 1)
Quarter: 2025Q2

REPORT INFORMATION
  Report Type: Spontaneous
  Country: US (occurrence: US)
  Receive Date: 20250507
  Receipt Date: 20250507
  Transmission Date: 20250717
  Serious: Yes (Other)
  Sender: HIKMA
  Company Number: US-HIKMA PHARMACEUTICALS-US-H14001-25-02563

PATIENT
  Age: 62 Year
  Sex: Female
  Weight: 54 kg

DRUGS (4)
  1. AMIKACIN [Suspect]
     Active Substance: AMIKACIN
     Route: 042
  2. AMIKACIN [Suspect]
     Active Substance: AMIKACIN
     Indication: Product used for unknown indication
     Dosage: 750 MILLIGRAM, QD ON MONDAY, WEDNESDAY AND FRIDAY,
     Route: 042
     Dates: start: 20241125
  3. AZITHROMYCIN [Suspect]
     Active Substance: AZITHROMYCIN
     Indication: Product used for unknown indication
     Dosage: 500 MILLIGRAM, QD
     Route: 065
     Dates: start: 20241125
  4. ETHAMBUTOL [Suspect]
     Active Substance: ETHAMBUTOL HYDROCHLORIDE
     Indication: Product used for unknown indication
     Dosage: 800 MILLIGRAM, QD
     Route: 065
     Dates: start: 20241125

REACTIONS (2)
  - Nephropathy toxic [Unknown]
  - Condition aggravated [Unknown]
